FAERS Safety Report 6486546-3 (Version None)
Quarter: 2009Q4

REPORT INFORMATION
  Report Type: 
  Country: None (occurrence: None)
  Receive Date: 20091209
  Receipt Date: 20091209
  Transmission Date: 20100525
  Serious: Yes (Hospitalization)
  Sender: FDA-Public Use
  Company Number: None

PATIENT
  Age: 76 Year
  Sex: Male
  Weight: 82.8 kg

DRUGS (11)
  1. VANCOMYCIN [Suspect]
     Indication: STAPHYLOCOCCAL INFECTION
     Dosage: 1.5GMS Q24 IV
     Route: 042
  2. ZOCOR [Concomitant]
  3. LISINOPRIL [Concomitant]
  4. METOPROLOL [Concomitant]
  5. PSYLLIUM [Concomitant]
  6. CENTRUM SILVER [Concomitant]
  7. SENOKOT [Concomitant]
  8. PEPCID [Concomitant]
  9. VALIUM [Concomitant]
  10. COUMADIN [Concomitant]
  11. VICODIN [Concomitant]

REACTIONS (2)
  - PYREXIA [None]
  - RASH [None]
